FAERS Safety Report 4321969-X (Version None)
Quarter: 2004Q1

REPORT INFORMATION
  Report Type: 
  Country: None (occurrence: None)
  Receive Date: 20040319
  Receipt Date: 20040311
  Transmission Date: 20041129
  Serious: Yes (Other)
  Sender: FDA-Public Use
  Company Number: 2004-DE-01023GD(0)

PATIENT
  Sex: Female

DRUGS (9)
  1. AZATHIOPRINE [Suspect]
     Indication: IMMUNOSUPPRESSION
  2. PREDNISONE [Suspect]
     Indication: IMMUNOSUPPRESSION
  3. METHOTREXATE [Suspect]
     Indication: IMMUNOSUPPRESSION
     Dosage: WEEKLY
  4. LANSOPRAZOLE [Suspect]
     Indication: COLITIS
  5. CYCLOSPORINE [Suspect]
     Indication: IMMUNOSUPPRESSION
  6. MYCOPHENOLATE (MYCOPHENOLATE MOFETIL) [Suspect]
     Indication: IMMUNOSUPPRESSION
  7. TACROLIMUS (TACROLIMUS) [Suspect]
     Indication: IMMUNOSUPPRESSION
  8. MAGNESIUM (MAGNESIUM) [Concomitant]
  9. IRON (IRON) [Concomitant]

REACTIONS (22)
  - ABDOMINAL PAIN UPPER [None]
  - ABSCESS INTESTINAL [None]
  - ANTINEUTROPHIL CYTOPLASMIC ANTIBODY INCREASED [None]
  - BACTERIA STOOL IDENTIFIED [None]
  - COLITIS [None]
  - CORONARY ARTERY ATHEROSCLEROSIS [None]
  - DECREASED APPETITE [None]
  - DIARRHOEA [None]
  - DISEASE PROGRESSION [None]
  - EOSINOPHILIA [None]
  - EPSTEIN-BARR VIRUS INFECTION [None]
  - GASTROENTERITIS CRYPTOSPORIDIAL [None]
  - GIARDIASIS [None]
  - HEART TRANSPLANT [None]
  - LEIOMYOSARCOMA [None]
  - LIVER DISORDER [None]
  - LYMPHADENOPATHY [None]
  - LYMPHOPROLIFERATIVE DISORDER [None]
  - POST PROCEDURAL COMPLICATION [None]
  - TRANSPLANT REJECTION [None]
  - VOMITING [None]
  - WEIGHT DECREASED [None]
